FAERS Safety Report 23146437 (Version 2)
Quarter: 2024Q1

REPORT INFORMATION
  Report Type: Spontaneous
  Country: US (occurrence: US)
  Receive Date: 20231104
  Receipt Date: 20240201
  Transmission Date: 20240409
  Serious: No
  Sender: FDA-Public Use
  Company Number: US-GLENMARK PHARMACEUTICALS-2023GMK085580

PATIENT

DRUGS (4)
  1. RYALTRIS [Suspect]
     Active Substance: MOMETASONE FUROATE MONOHYDRATE\OLOPATADINE HYDROCHLORIDE
     Indication: Hypersensitivity
     Dosage: 2 DOSAGE FORM, BID (IN EACH NOSTRIL)
     Route: 045
     Dates: start: 202307
  2. RYALTRIS [Suspect]
     Active Substance: MOMETASONE FUROATE MONOHYDRATE\OLOPATADINE HYDROCHLORIDE
     Indication: Sinus disorder
     Dosage: 2 DOSAGE FORM, QD (SHE WAS USING THE PRODUCT 7 DAYS A WEEK, 2 SQUIRTS IN EACH NOSTRIL ONCE A DAY)
     Route: 045
     Dates: start: 202307
  3. RYALTRIS [Suspect]
     Active Substance: MOMETASONE FUROATE MONOHYDRATE\OLOPATADINE HYDROCHLORIDE
     Indication: Oropharyngeal pain
  4. RYALTRIS [Suspect]
     Active Substance: MOMETASONE FUROATE MONOHYDRATE\OLOPATADINE HYDROCHLORIDE
     Indication: Drainage

REACTIONS (13)
  - Ocular hyperaemia [Unknown]
  - Eyelid margin crusting [Unknown]
  - Seasonal allergy [Unknown]
  - Condition aggravated [Unknown]
  - Purulent discharge [Unknown]
  - Eye infection bacterial [Unknown]
  - Product use in unapproved indication [Unknown]
  - Eyelid function disorder [Unknown]
  - Myalgia [Unknown]
  - Eye discharge [Unknown]
  - Eye pruritus [Unknown]
  - Vision blurred [Unknown]
  - Product quality issue [Unknown]

NARRATIVE: CASE EVENT DATE: 20230701
